FAERS Safety Report 23439276 (Version 1)
Quarter: 2024Q1

REPORT INFORMATION
  Report Type: Spontaneous
  Country: GB (occurrence: GB)
  Receive Date: 20240124
  Receipt Date: 20240124
  Transmission Date: 20240409
  Serious: Yes (Other)
  Sender: FDA-Public Use
  Company Number: GB-MAYNE PHARMA-2024MYN000014

PATIENT

DRUGS (2)
  1. SOLTAMOX [Suspect]
     Active Substance: TAMOXIFEN CITRATE
     Indication: Product used for unknown indication
     Route: 065
  2. LETROZOLE [Suspect]
     Active Substance: LETROZOLE
     Indication: Product used for unknown indication
     Route: 065

REACTIONS (10)
  - Bladder dysfunction [Unknown]
  - Thirst [Unknown]
  - Muscle spasms [Unknown]
  - Tendonitis [Unknown]
  - Muscular weakness [Unknown]
  - Pain in extremity [Unknown]
  - Balance disorder [Unknown]
  - Insomnia [Unknown]
  - Headache [Unknown]
  - Dizziness [Unknown]
